FAERS Safety Report 9277317 (Version 1)
Quarter: 2013Q2

REPORT INFORMATION
  Report Type: Spontaneous
  Country: US (occurrence: None)
  Receive Date: 20130503
  Receipt Date: 20130503
  Transmission Date: 20140414
  Serious: Yes (Other)
  Sender: FDA-Public Use
  Company Number: None

PATIENT
  Age: 54 Year
  Sex: Female
  Weight: 56.7 kg

DRUGS (1)
  1. BENEFIANEE WRINKLERESIST 24 DAY [Suspect]

REACTIONS (1)
  - Dysgeusia [None]
